FAERS Safety Report 16614839 (Version 1)
Quarter: 2019Q3

REPORT INFORMATION
  Report Type: Spontaneous
  Country: US (occurrence: US)
  Receive Date: 20190723
  Receipt Date: 20190723
  Transmission Date: 20191004
  Serious: No
  Sender: FDA-Public Use
  Company Number: US-JNJFOC-20190722377

PATIENT
  Sex: Female

DRUGS (1)
  1. WOMENS ROGAINE [Suspect]
     Active Substance: MINOXIDIL
     Indication: ALOPECIA
     Dosage: USED MINOXIDIL FOR OVER A YEAR,  STOP USING IT UNTIL ABOUT 3 WEEKS AGO, STARTED USING IT AGAIN ON AN
     Route: 061

REACTIONS (1)
  - Alopecia [Not Recovered/Not Resolved]
